FAERS Safety Report 7463562-6 (Version None)
Quarter: 2011Q2

REPORT INFORMATION
  Report Type: 
  Country: None (occurrence: None)
  Receive Date: 20110506
  Receipt Date: 20110428
  Transmission Date: 20111010
  Serious: Yes (Death)
  Sender: FDA-Public Use
  Company Number: US-ELI_LILLY_AND_COMPANY-US201104008265

PATIENT
  Age: 50 Year
  Sex: Female

DRUGS (2)
  1. HEPARIN [Concomitant]
     Dosage: UNK, UNKNOWN
     Route: 042
     Dates: start: 20110101
  2. EFFIENT [Suspect]
     Indication: STENT PLACEMENT
     Dosage: 60 MG, UNKNOWN
     Dates: start: 20110101, end: 20110101

REACTIONS (2)
  - RETROPERITONEAL HAEMORRHAGE [None]
  - ARTERY DISSECTION [None]
